FAERS Safety Report 15557756 (Version 2)
Quarter: 2018Q4

REPORT INFORMATION
  Report Type: Spontaneous
  Country: RU (occurrence: RU)
  Receive Date: 20181027
  Receipt Date: 20181214
  Transmission Date: 20190205
  Serious: Yes (Hospitalization)
  Sender: FDA-Public Use
  Company Number: RU-ABBVIE-18S-251-2532912-00

PATIENT
  Age: 69 Year
  Sex: Male
  Weight: 65 kg

DRUGS (1)
  1. VIEKIRA PAK [Suspect]
     Active Substance: DASABUVIR\OMBITASVIR\PARITAPREVIR\RITONAVIR
     Indication: CHRONIC HEPATITIS C
     Dosage: 2 TABL OMBITASVIR12.5MG+PARITA.75 MG+RITO.50MG 1XDAY; 1TTBL DASABUVIR 250MG TWICE A DAY
     Route: 048
     Dates: start: 20181004, end: 20181022

REACTIONS (8)
  - Gastric mucosa erythema [Unknown]
  - Haematemesis [Recovering/Resolving]
  - Varices oesophageal [Unknown]
  - Melaena [Recovering/Resolving]
  - Dizziness [Recovered/Resolved]
  - Oesophageal varices haemorrhage [Recovered/Resolved]
  - Stress [Unknown]
  - Asthenia [Recovering/Resolving]

NARRATIVE: CASE EVENT DATE: 201810
